FAERS Safety Report 19987539 (Version 5)
Quarter: 2025Q4

REPORT INFORMATION
  Report Type: Spontaneous
  Country: CH (occurrence: CH)
  Receive Date: 20211022
  Receipt Date: 20251017
  Transmission Date: 20260118
  Serious: Yes (Life-Threatening, Other)
  Sender: PFIZER
  Company Number: CH-PFIZER INC-202101356990

PATIENT
  Age: 85 Year
  Sex: Male

DRUGS (10)
  1. LORAZEPAM [Interacting]
     Active Substance: LORAZEPAM
     Indication: Depression
     Dosage: 1 MG, 1X/DAY
     Dates: start: 2017
  2. LORAZEPAM [Interacting]
     Active Substance: LORAZEPAM
     Indication: Anxiety
     Dosage: 2 MG, 2X/DAY, MORNING AND EVENING
  3. LORAZEPAM [Interacting]
     Active Substance: LORAZEPAM
     Dosage: 1.5 MG, 2X/DAY, MORNING AND EVENING
  4. LORAZEPAM [Interacting]
     Active Substance: LORAZEPAM
     Dosage: 1 MG, 2X/DAY, MORNING AND EVENING
     Dates: start: 201707
  5. LORAZEPAM [Interacting]
     Active Substance: LORAZEPAM
     Dosage: 1 MG, DAILY
     Dates: start: 2021
  6. SERTRALINE HYDROCHLORIDE [Interacting]
     Active Substance: SERTRALINE HYDROCHLORIDE
     Indication: Depression
     Dosage: UNK
     Dates: start: 202011, end: 202012
  7. SERTRALINE HYDROCHLORIDE [Interacting]
     Active Substance: SERTRALINE HYDROCHLORIDE
     Dosage: UP TO 2 TABLETS PER DAY
     Dates: start: 202012
  8. SERTRALINE HYDROCHLORIDE [Interacting]
     Active Substance: SERTRALINE HYDROCHLORIDE
     Dosage: 1 TABLET FOR WITHDRAWAL
     Dates: start: 202101, end: 202103
  9. SERTRALINE HYDROCHLORIDE [Interacting]
     Active Substance: SERTRALINE HYDROCHLORIDE
     Dosage: ONE AND A HALF TABLETS
  10. QUETIAPINE [Interacting]
     Active Substance: QUETIAPINE
     Dosage: UNK
     Dates: start: 2020

REACTIONS (23)
  - Cerebrovascular accident [Unknown]
  - Hyperaesthesia [Unknown]
  - Emotional distress [Unknown]
  - Drug intolerance [Unknown]
  - Loss of consciousness [Unknown]
  - Drug interaction [Unknown]
  - Pain [Unknown]
  - Vision blurred [Unknown]
  - Pain in extremity [Unknown]
  - Sleep disorder [Unknown]
  - Insomnia [Unknown]
  - Irritable bowel syndrome [Unknown]
  - Amnesia [Unknown]
  - Vertigo [Unknown]
  - Agnosia [Unknown]
  - Visual field defect [Unknown]
  - Depression [Unknown]
  - Illogical thinking [Unknown]
  - Hyperacusis [Unknown]
  - Photophobia [Unknown]
  - Panic attack [Recovered/Resolved]
  - Disturbance in attention [Unknown]
  - Product use issue [Unknown]

NARRATIVE: CASE EVENT DATE: 20210303
